FAERS Safety Report 9045881 (Version 1)
Quarter: 2013Q1

REPORT INFORMATION
  Report Type: Report from Study
  Country: US (occurrence: US)
  Receive Date: 20130201
  Receipt Date: 20130201
  Transmission Date: 20140127
  Serious: No
  Sender: FDA-Public Use
  Company Number: US-ABBOTT-12P-163-1023561-00

PATIENT
  Age: 49 Year
  Sex: Female

DRUGS (3)
  1. HUMIRA [Suspect]
     Indication: COLITIS ULCERATIVE
     Dates: start: 20121116
  2. ASACOL [Concomitant]
     Indication: COLITIS
  3. OCELLA BIRTH CONTROL PILL [Concomitant]
     Indication: PRODUCT USED FOR UNKNOWN INDICATION
     Dosage: DAILY

REACTIONS (2)
  - Injection site erythema [Recovered/Resolved]
  - Injection site swelling [Recovered/Resolved]
